FAERS Safety Report 14625258 (Version 5)
Quarter: 2018Q2

REPORT INFORMATION
  Report Type: Report from Study
  Country: US (occurrence: BR)
  Receive Date: 20180312
  Receipt Date: 20180606
  Transmission Date: 20180711
  Serious: Yes (Life-Threatening, Hospitalization, Other)
  Sender: FDA-Public Use
  Company Number: US-SUNOVION-2018SUN000870

PATIENT
  Sex: Female
  Weight: 52 kg

DRUGS (5)
  1. XOLAIR [Suspect]
     Active Substance: OMALIZUMAB
     Indication: ASTHMA
     Dosage: 150 MG, EVERY 15 DAYS
     Route: 058
     Dates: start: 20171211
  2. ALENIA [Concomitant]
     Active Substance: BUDESONIDE\FORMOTEROL FUMARATE
  3. INDACATEROL AND GLYCOPYRROLATE [Suspect]
     Active Substance: GLYCOPYRROLATE\INDACATEROL MALEATE
     Indication: PRODUCT USED FOR UNKNOWN INDICATION
     Route: 065
  4. XOLAIR [Suspect]
     Active Substance: OMALIZUMAB
     Indication: CHRONIC OBSTRUCTIVE PULMONARY DISEASE
     Dosage: UNK
  5. XOLAIR [Suspect]
     Active Substance: OMALIZUMAB
     Indication: BRONCHITIS

REACTIONS (21)
  - Nausea [Recovering/Resolving]
  - Asphyxia [Recovered/Resolved]
  - Mobility decreased [Recovering/Resolving]
  - Pain [Unknown]
  - Temperature intolerance [Unknown]
  - Weight increased [Unknown]
  - Viral infection [Unknown]
  - Headache [Recovering/Resolving]
  - Bronchitis [Unknown]
  - Dyspnoea [Unknown]
  - Fatigue [Unknown]
  - Malaise [Recovering/Resolving]
  - Sensitivity to weather change [Unknown]
  - Coma [Recovered/Resolved]
  - Condition aggravated [Recovered/Resolved]
  - Abdominal pain [Recovering/Resolving]
  - Osteoporosis [Not Recovered/Not Resolved]
  - Asthma [Unknown]
  - Decreased immune responsiveness [Unknown]
  - Muscular weakness [Unknown]
  - Hypotension [Unknown]

NARRATIVE: CASE EVENT DATE: 2017
